FAERS Safety Report 7760877-9 (Version None)
Quarter: 2011Q3

REPORT INFORMATION
  Report Type: 
  Country: None (occurrence: None)
  Receive Date: 20110919
  Receipt Date: 20110909
  Transmission Date: 20111222
  Serious: Yes (Hospitalization, Other)
  Sender: FDA-Public Use
  Company Number: US-ABBOTT-08P-163-0453200-00

PATIENT
  Sex: Female
  Weight: 69.008 kg

DRUGS (25)
  1. HUMIRA [Suspect]
     Indication: CROHN'S DISEASE
     Route: 058
     Dates: start: 20100101
  2. VITAMIN B-12 [Concomitant]
  3. PREDNISONE [Concomitant]
     Indication: CROHN'S DISEASE
     Route: 048
     Dates: end: 20080430
  4. VISTARIL [Concomitant]
     Indication: PRURITUS
     Route: 048
     Dates: start: 20060101
  5. KLONOPIN [Concomitant]
     Indication: ANXIETY
  6. IBUPROFEN [Suspect]
  7. VITAMIN B-12 [Concomitant]
     Indication: VITAMIN SUPPLEMENTATION
     Dates: start: 20080425, end: 20080425
  8. VISTARIL [Concomitant]
  9. FIORICET W/ CODEINE [Concomitant]
     Indication: MIGRAINE
  10. MERCAPTOPURINE [Concomitant]
     Indication: CROHN'S DISEASE
     Route: 048
     Dates: start: 20060101, end: 20080430
  11. LORTAB [Concomitant]
     Indication: PAIN
     Dosage: 5/500 MG, PRN, USUALLY TAKE 3 A DAY
     Route: 048
     Dates: start: 20060101
  12. FERROUS SULFATE TAB [Concomitant]
     Indication: ANAEMIA
     Route: 048
     Dates: start: 20080424
  13. POTASSIUM [Concomitant]
     Indication: MINERAL SUPPLEMENTATION
     Route: 048
     Dates: start: 20080201, end: 20080301
  14. HUMIRA [Suspect]
     Route: 058
  15. CYMBALTA [Concomitant]
     Indication: DEPRESSION
     Route: 048
     Dates: start: 20040101
  16. SEROQUEL [Concomitant]
     Indication: DEPRESSION
     Route: 048
     Dates: start: 20040101
  17. SEROQUEL [Concomitant]
     Indication: SLEEP DISORDER THERAPY
  18. PRILOSEC [Concomitant]
     Indication: PRODUCT USED FOR UNKNOWN INDICATION
  19. IBUPROFEN [Suspect]
     Indication: PAIN
     Route: 048
     Dates: start: 20080517, end: 20080519
  20. XANAX [Concomitant]
     Indication: ANXIETY
     Route: 048
     Dates: start: 20060101
  21. HUMIRA [Suspect]
     Indication: CROHN'S DISEASE
     Dosage: LOADING DOSE
     Route: 058
     Dates: start: 20080429, end: 20080429
  22. PREDNISONE [Suspect]
     Indication: PRODUCT USED FOR UNKNOWN INDICATION
     Dosage: OCCASIONAL USE
  23. SOMA [Concomitant]
     Indication: MUSCLE RELAXANT THERAPY
     Dosage: ONE PILL USUALLY AT NIGHT TIME
     Dates: start: 20060101
  24. LASIX [Concomitant]
     Indication: SWELLING
     Dosage: DAILY, 40-80 MG DAILY
     Route: 048
     Dates: start: 20080201, end: 20080301
  25. POTASSIUM [Concomitant]
     Indication: PROPHYLAXIS

REACTIONS (9)
  - PAIN IN EXTREMITY [None]
  - TOOTH EROSION [None]
  - GAIT DISTURBANCE [None]
  - SWELLING [None]
  - PAIN [None]
  - CONDITION AGGRAVATED [None]
  - FATIGUE [None]
  - ABDOMINAL PAIN UPPER [None]
  - ARTHRALGIA [None]
